FAERS Safety Report 4456924-2 (Version None)
Quarter: 2004Q3

REPORT INFORMATION
  Report Type: 
  Country: None (occurrence: None)
  Receive Date: 20040921
  Receipt Date: 20040913
  Transmission Date: 20050211
  Serious: Yes (Other)
  Sender: FDA-Public Use
  Company Number: 200410527BNE

PATIENT
  Age: 5 Year
  Sex: Female

DRUGS (3)
  1. CIPROFLOXACIN [Suspect]
     Indication: RESPIRATORY TRACT INFECTION
     Dosage: 125 MG BID ORAL
     Route: 048
  2. ACYCLOVIR [Concomitant]
  3. COTRIM [Concomitant]

REACTIONS (1)
  - HAEMOLYTIC ANAEMIA [None]
